FAERS Safety Report 9358417 (Version 1)
Quarter: 2013Q2

REPORT INFORMATION
  Report Type: Spontaneous
  Country: US (occurrence: None)
  Receive Date: 20130619
  Receipt Date: 20130619
  Transmission Date: 20140414
  Serious: Yes (Hospitalization)
  Sender: FDA-Public Use
  Company Number: None

PATIENT
  Age: 87 Year
  Sex: Male
  Weight: 91.4 kg

DRUGS (1)
  1. LISINOPRIL 40MG [Suspect]
     Indication: HYPERTENSION
     Route: 048
     Dates: start: 20080211, end: 20130606

REACTIONS (1)
  - Hyperkalaemia [None]
